FAERS Safety Report 12203082 (Version 4)
Quarter: 2020Q3

REPORT INFORMATION
  Report Type: Report from Study
  Country: US (occurrence: US)
  Receive Date: 20160323
  Receipt Date: 20190213
  Transmission Date: 20201104
  Serious: Yes (Life-Threatening, Hospitalization)
  Sender: FDA-Public Use
  Company Number: US-ROCHE-1726800

PATIENT
  Age: 49 Year
  Sex: Male
  Weight: 73.9 kg

DRUGS (3)
  1. TASELISIB. [Suspect]
     Active Substance: TASELISIB
     Dosage: 2
     Route: 048
     Dates: start: 20151110
  2. TRASTUZUMAB EMTANSINE [Suspect]
     Active Substance: ADO-TRASTUZUMAB EMTANSINE
     Dosage: T?DM1
     Route: 042
     Dates: start: 20151110
  3. QUETIAPINE. [Concomitant]
     Active Substance: QUETIAPINE
     Route: 048

REACTIONS (1)
  - Brain oedema [Recovered/Resolved]

NARRATIVE: CASE EVENT DATE: 20160312
